FAERS Safety Report 15466623 (Version 1)
Quarter: 2018Q4

REPORT INFORMATION
  Report Type: Report from Study
  Country: CA (occurrence: CA)
  Receive Date: 20181005
  Receipt Date: 20181005
  Transmission Date: 20190204
  Serious: Yes (Hospitalization, Other)
  Sender: FDA-Public Use
  Company Number: CA-IPSEN BIOPHARMACEUTICALS, INC.-2018-05484

PATIENT
  Age: 80 Year
  Sex: Male
  Weight: 82 kg

DRUGS (2)
  1. SOMATULINE AUTOGEL 120MG [Suspect]
     Active Substance: LANREOTIDE ACETATE
     Indication: NEUROENDOCRINE TUMOUR
     Route: 058
     Dates: start: 20151217, end: 20180505
  2. SOMATULINE AUTOGEL 120MG [Suspect]
     Active Substance: LANREOTIDE ACETATE
     Dosage: 120 MG
     Route: 058
     Dates: start: 201805

REACTIONS (6)
  - Anal abscess [Recovered/Resolved]
  - Abscess limb [Recovered/Resolved]
  - Anal abscess [Recovering/Resolving]
  - Anal abscess [Recovered/Resolved]
  - Anal abscess [Recovered/Resolved]
  - Tinea pedis [Recovering/Resolving]

NARRATIVE: CASE EVENT DATE: 20180310
